FAERS Safety Report 4829145-9 (Version None)
Quarter: 2005Q4

REPORT INFORMATION
  Report Type: 
  Country: None (occurrence: None)
  Receive Date: 20051027
  Receipt Date: 20041013
  Transmission Date: 20060501
  Serious: Yes (Hospitalization)
  Sender: FDA-Public Use
  Company Number: USA-2004-0017226

PATIENT
  Sex: Female

DRUGS (1)
  1. SPECTRACEF [Suspect]
     Dosage: 1 TABLET, BID, UNKNOWN
     Route: 065

REACTIONS (1)
  - CLOSTRIDIUM COLITIS [None]
